FAERS Safety Report 19806870 (Version 2)
Quarter: 2021Q3

REPORT INFORMATION
  Report Type: Spontaneous
  Country: BR (occurrence: BR)
  Receive Date: 20210908
  Receipt Date: 20210925
  Transmission Date: 20211014
  Serious: Yes (Other)
  Sender: FDA-Public Use
  Company Number: BR-ROCHE-2905194

PATIENT
  Age: 48 Year
  Sex: Male
  Weight: 108 kg

DRUGS (1)
  1. ACTEMRA [Suspect]
     Active Substance: TOCILIZUMAB
     Indication: COVID-19
     Dosage: INJECTABLE
     Route: 042
     Dates: start: 20210603, end: 20210603

REACTIONS (3)
  - Hepatic enzyme increased [Recovered/Resolved]
  - Chronic hepatitis B [Recovered/Resolved]
  - Off label use [Unknown]

NARRATIVE: CASE EVENT DATE: 20210603
